FAERS Safety Report 14313249 (Version 1)
Quarter: 2017Q4

REPORT INFORMATION
  Report Type: Spontaneous
  Country: JP (occurrence: JP)
  Receive Date: 20171221
  Receipt Date: 20171221
  Transmission Date: 20180321
  Serious: Yes (Hospitalization)
  Sender: FDA-Public Use
  Company Number: JP-BAYER-2017-242772

PATIENT
  Sex: Female
  Weight: 3.53 kg

DRUGS (1)
  1. BAYASPIRIN 100 MG [Suspect]
     Active Substance: ASPIRIN
     Indication: HABITUAL ABORTION
     Route: 064

REACTIONS (5)
  - Bloch-Sulzberger syndrome [None]
  - Retinal vascular disorder [None]
  - Epilepsy [None]
  - Cerebral infarction [None]
  - Maternal exposure during pregnancy [None]
